FAERS Safety Report 4882484-8 (Version None)
Quarter: 2005Q4

REPORT INFORMATION
  Report Type: 
  Country: None (occurrence: None)
  Receive Date: 20051201
  Receipt Date: 20050929
  Transmission Date: 20060501
  Serious: No
  Sender: FDA-Public Use
  Company Number: 2005PV002646

PATIENT
  Age: 45 Year
  Sex: Female
  Weight: 113.3993 kg

DRUGS (6)
  1. BYETTA [Suspect]
     Indication: DIABETES MELLITUS NON-INSULIN-DEPENDENT
     Dosage: 5 MCG;BID;SC
     Route: 058
     Dates: start: 20050830
  2. GLYBURIDE [Concomitant]
  3. ATENOLOL [Concomitant]
  4. LOTREL [Concomitant]
  5. HYDROCHLOROTHIAZIDE [Concomitant]
  6. ACIPHEX [Concomitant]

REACTIONS (4)
  - DIZZINESS [None]
  - FEELING JITTERY [None]
  - INJECTION SITE HAEMORRHAGE [None]
  - INJECTION SITE PAIN [None]
